FAERS Safety Report 10628198 (Version 1)
Quarter: 2014Q4

REPORT INFORMATION
  Report Type: Spontaneous
  Country: US (occurrence: US)
  Receive Date: 20141205
  Receipt Date: 20141205
  Transmission Date: 20150529
  Serious: No
  Sender: FDA-Public Use
  Company Number: US-BRISTOL-MYERS SQUIBB COMPANY-21241559

PATIENT
  Age: 92 Year
  Sex: Male

DRUGS (1)
  1. ERBITUX [Suspect]
     Active Substance: CETUXIMAB
     Indication: HEAD AND NECK CANCER
     Dosage: 1 DF = 100 AND 200MG VIAL?LOT#: IMD260 EXP DATE: APRIL 2017 FOR 200 MG VIAL.

REACTIONS (3)
  - Tenderness [Unknown]
  - Infusion site extravasation [Unknown]
  - Pain in extremity [Unknown]
